FAERS Safety Report 8259155-3 (Version None)
Quarter: 2012Q2

REPORT INFORMATION
  Report Type: 
  Country: None (occurrence: None)
  Receive Date: 20120404
  Receipt Date: 20120326
  Transmission Date: 20120825
  Serious: Yes (Hospitalization)
  Sender: FDA-Public Use
  Company Number: CHNY2007BR02314

PATIENT
  Sex: Male
  Weight: 80 kg

DRUGS (3)
  1. AMLODIPINE BESYLATE [Concomitant]
     Indication: BLOOD PRESSURE INCREASED
     Dosage: 5 MG, QD
     Route: 048
  2. ATENOLOL [Concomitant]
     Indication: BLOOD PRESSURE INCREASED
     Dosage: 25 MG, QD
  3. BUFFERIN [Suspect]
     Indication: HEADACHE
     Dosage: 500 MG, QD
     Route: 048
     Dates: start: 20070612

REACTIONS (5)
  - RHINORRHOEA [None]
  - PNEUMONIA [None]
  - DRUG INEFFECTIVE [None]
  - RHINITIS [None]
  - HEADACHE [None]
